FAERS Safety Report 7811821-7 (Version None)
Quarter: 2011Q4

REPORT INFORMATION
  Report Type: 
  Country: None (occurrence: None)
  Receive Date: 20111013
  Receipt Date: 20110801
  Transmission Date: 20120403
  Serious: No
  Sender: FDA-Public Use
  Company Number: US-NOVEN-11US002903

PATIENT
  Sex: Female

DRUGS (3)
  1. FENTANYL [Suspect]
     Indication: FIBROMYALGIA
  2. LORCEF [Concomitant]
     Indication: BREAKTHROUGH PAIN
  3. FENTANYL [Suspect]
     Indication: SPINAL OSTEOARTHRITIS
     Dosage: 50 UG, Q72H
     Route: 062

REACTIONS (2)
  - INADEQUATE ANALGESIA [None]
  - PRODUCT QUALITY ISSUE [None]
